FAERS Safety Report 17566367 (Version 1)
Quarter: 2020Q1

REPORT INFORMATION
  Report Type: Report from Study
  Country: US (occurrence: US)
  Receive Date: 20200320
  Receipt Date: 20200320
  Transmission Date: 20200409
  Serious: Yes (Death, Other)
  Sender: FDA-Public Use
  Company Number: US-MYLANLABS-2020M1017105

PATIENT
  Sex: Female

DRUGS (6)
  1. CLOZAPINE. [Suspect]
     Active Substance: CLOZAPINE
     Indication: POST-TRAUMATIC STRESS DISORDER
     Dosage: 25 MILLIGRAM, QD
     Route: 048
     Dates: start: 20190515, end: 2019
  2. CLOZAPINE. [Suspect]
     Active Substance: CLOZAPINE
     Indication: BIPOLAR II DISORDER
     Dosage: 50 MILLIGRAM, QD
     Route: 048
     Dates: start: 2019, end: 2019
  3. HYDROXYZINE [Concomitant]
     Active Substance: HYDROXYZINE HYDROCHLORIDE
     Dosage: 50 MG TID AS NEEDED ^NTE^ (NOT TO EXCEED) 40 CAP/30 DAYS 50 MILLIGRAM, PRN
  4. CLOZAPINE. [Suspect]
     Active Substance: CLOZAPINE
     Dosage: 75 MILLIGRAM, QD
     Route: 048
     Dates: start: 2019, end: 2019
  5. CLOZAPINE. [Suspect]
     Active Substance: CLOZAPINE
     Dosage: 100 MILLIGRAM, QD
     Route: 048
     Dates: start: 2019, end: 201906
  6. TRAZODONE [Concomitant]
     Active Substance: TRAZODONE HYDROCHLORIDE
     Dosage: 300 MILLIGRAM, PM

REACTIONS (10)
  - Overdose [Unknown]
  - Diabetes mellitus [Unknown]
  - Fractured sacrum [Unknown]
  - Persistent depressive disorder [Unknown]
  - Head injury [Unknown]
  - Fall [Unknown]
  - Lung abscess [Fatal]
  - Treatment noncompliance [Unknown]
  - Pneumonia escherichia [Fatal]
  - Suicidal ideation [Unknown]

NARRATIVE: CASE EVENT DATE: 2019
